FAERS Safety Report 7652237-6 (Version None)
Quarter: 2011Q3

REPORT INFORMATION
  Report Type: 
  Country: None (occurrence: None)
  Receive Date: 20110803
  Receipt Date: 20110801
  Transmission Date: 20111222
  Serious: No
  Sender: FDA-Public Use
  Company Number: US-BAYER-2011-067527

PATIENT
  Age: 44 Year
  Sex: Female

DRUGS (2)
  1. BEYAZ [Suspect]
     Indication: ORAL CONTRACEPTION
     Dosage: UNK
     Route: 048
     Dates: start: 20110701, end: 20110701
  2. BEYAZ [Suspect]
     Indication: HORMONE LEVEL ABNORMAL

REACTIONS (2)
  - DYSPNOEA [None]
  - CHEST DISCOMFORT [None]
